FAERS Safety Report 6149114-9 (Version None)
Quarter: 2009Q2

REPORT INFORMATION
  Report Type: 
  Country: None (occurrence: None)
  Receive Date: 20090407
  Receipt Date: 20090327
  Transmission Date: 20091009
  Serious: Yes (Hospitalization)
  Sender: FDA-Public Use
  Company Number: WAES 0807USA05911

PATIENT
  Age: 72 Year
  Sex: Male

DRUGS (14)
  1. CAP VORINOSTAT [Suspect]
     Indication: NON-SMALL CELL LUNG CANCER
     Dosage: 400 MG/DAILY, PO
     Route: 048
     Dates: start: 20080627, end: 20080710
  2. CAP VORINOSTAT [Suspect]
     Indication: NON-SMALL CELL LUNG CANCER
     Dosage: 400 MG/DAILY, PO
     Route: 048
     Dates: start: 20080722, end: 20080729
  3. CARBOPLATIN [Suspect]
     Indication: NON-SMALL CELL LUNG CANCER
     Dosage: 546.6 MG/1X, IV; 402.84  MG/1X, IV
     Route: 042
     Dates: start: 20080701, end: 20080701
  4. CARBOPLATIN [Suspect]
     Indication: NON-SMALL CELL LUNG CANCER
     Dosage: 546.6 MG/1X, IV; 402.84  MG/1X, IV
     Route: 042
     Dates: start: 20080722, end: 20080722
  5. PACLITAXEL [Suspect]
     Indication: NON-SMALL CELL LUNG CANCER
     Dosage: 334  MG/1X, IV; 320  MG/1X, IV
     Route: 042
     Dates: start: 20080701, end: 20080701
  6. PACLITAXEL [Suspect]
     Indication: NON-SMALL CELL LUNG CANCER
     Dosage: 334  MG/1X, IV; 320  MG/1X, IV
     Route: 042
     Dates: start: 20080722, end: 20080722
  7. ARCOXIA [Concomitant]
  8. ATORVASTATIN CALCIUM [Concomitant]
  9. CHLORPHENIRAMINE MALEATE [Concomitant]
  10. DEXAMETHASONE TAB [Concomitant]
  11. DILTIAZEM HCL [Concomitant]
  12. OMEPRAZOLE [Concomitant]
  13. ONDANSETRON [Concomitant]
  14. RANITIDINE [Concomitant]

REACTIONS (10)
  - ANAEMIA [None]
  - DIARRHOEA [None]
  - HAEMATOTOXICITY [None]
  - HICCUPS [None]
  - MUSCULOSKELETAL PAIN [None]
  - NEUTROPENIA [None]
  - OESOPHAGITIS [None]
  - SEPTIC SHOCK [None]
  - THROMBOCYTOPENIA [None]
  - WHITE BLOOD CELL COUNT DECREASED [None]
